FAERS Safety Report 7417967-X (Version None)
Quarter: 2011Q2

REPORT INFORMATION
  Report Type: 
  Country: None (occurrence: None)
  Receive Date: 20110415
  Receipt Date: 20110407
  Transmission Date: 20111010
  Serious: Yes (Other)
  Sender: FDA-Public Use
  Company Number: JP-SANOFI-AVENTIS-2010SA074855

PATIENT
  Age: 70 Year
  Sex: Male
  Weight: 75 kg

DRUGS (12)
  1. BEVACIZUMAB [Suspect]
     Indication: COLON CANCER
     Route: 041
     Dates: start: 20100603
  2. GLIMICRON [Concomitant]
  3. TEPRENONE [Concomitant]
  4. CAPECITABINE [Suspect]
     Route: 048
     Dates: start: 20101019, end: 20101116
  5. MAGNESIUM OXIDE [Concomitant]
  6. OXALIPLATIN [Suspect]
     Indication: COLON CANCER
     Route: 042
     Dates: start: 20100603, end: 20100603
  7. OXALIPLATIN [Suspect]
     Route: 042
     Dates: start: 20101019, end: 20101019
  8. OXALIPLATIN [Suspect]
     Route: 042
     Dates: start: 20101109, end: 20101109
  9. CAPECITABINE [Suspect]
     Indication: COLON CANCER
     Route: 048
     Dates: start: 20100603
  10. BEVACIZUMAB [Suspect]
     Route: 041
     Dates: start: 20101019, end: 20101109
  11. URSO 250 [Concomitant]
  12. ALDACTONE [Concomitant]

REACTIONS (1)
  - DUODENAL ULCER [None]
